FAERS Safety Report 23242794 (Version 2)
Quarter: 2024Q1

REPORT INFORMATION
  Report Type: Report from Study
  Country: IE (occurrence: IE)
  Receive Date: 20231129
  Receipt Date: 20240228
  Transmission Date: 20240410
  Serious: Yes (Disabling)
  Sender: FDA-Public Use
  Company Number: IE-SA-SAC20231128001141

PATIENT
  Age: 22 Year
  Sex: Female

DRUGS (2)
  1. DUPILUMAB [Suspect]
     Active Substance: DUPILUMAB
     Indication: Dermatitis atopic
     Dosage: 600 MG, 1X
     Route: 058
     Dates: start: 20230825, end: 20230825
  2. DUPILUMAB [Suspect]
     Active Substance: DUPILUMAB
     Dosage: 300 MG, QOW
     Route: 058

REACTIONS (5)
  - Impaired driving ability [Recovered/Resolved]
  - Lacrimation increased [Recovered/Resolved]
  - Dry skin [Unknown]
  - Eye disorder [Not Recovered/Not Resolved]
  - Skin exfoliation [Unknown]

NARRATIVE: CASE EVENT DATE: 20230801
